FAERS Safety Report 9370123 (Version 1)
Quarter: 2013Q2

REPORT INFORMATION
  Report Type: Spontaneous
  Country: US (occurrence: None)
  Receive Date: 20130621
  Receipt Date: 20130621
  Transmission Date: 20140414
  Serious: Yes (Hospitalization)
  Sender: FDA-Public Use
  Company Number: SYM-2013-04660

PATIENT
  Age: 62 Year
  Sex: Male

DRUGS (3)
  1. TRAMADOL (TRAMADOL) (TRAMADOL) [Suspect]
     Indication: MUSCULOSKELETAL PAIN
  2. BUPROPION (BUPROPION) (BUPROPION) [Suspect]
     Dosage: 150 MG, 2 IN 1
  3. CITALOPRAM (CITALOPRAM) (CITALOPRAM) [Suspect]
     Dosage: 40 MG, 2 IN 1

REACTIONS (1)
  - Serotonin syndrome [None]
